FAERS Safety Report 8088793-6 (Version None)
Quarter: 2012Q1

REPORT INFORMATION
  Report Type: 
  Country: None (occurrence: None)
  Receive Date: 20120128
  Receipt Date: 20110429
  Transmission Date: 20120608
  Serious: Yes (Other)
  Sender: FDA-Public Use
  Company Number: US-ABBOTT-11P-163-0722772-00

PATIENT
  Age: 41 Year
  Sex: Female

DRUGS (23)
  1. ALLOPURINOL [Concomitant]
     Indication: BLOOD URIC ACID INCREASED
     Dosage: 100 MG DAILY
  2. SAVELLA [Concomitant]
     Indication: FIBROMYALGIA
     Dosage: 50MG X 1 TABLET IN MORNING AND AT BEDTIME
  3. ATENOLOL [Concomitant]
     Indication: HYPERTENSION
  4. CRANBERRY [Concomitant]
     Indication: VITAMIN SUPPLEMENTATION
  5. SERTRALINE HYDROCHLORIDE [Concomitant]
     Indication: ANXIETY
     Dosage: 100MG X 1/2 TABLET AT BEDTIME
  6. VITAMIN D [Concomitant]
     Indication: VITAMIN D ABNORMAL
  7. HUMIRA [Suspect]
     Route: 058
     Dates: start: 20110401, end: 20110420
  8. HUMIRA [Suspect]
     Route: 058
     Dates: start: 20110420
  9. CLONAZEPAM [Concomitant]
     Indication: INSOMNIA
     Dosage: 1MG X 2 TABLETS AT BEDTIME
  10. NABUMETONE [Concomitant]
     Indication: RHEUMATOID ARTHRITIS
     Dosage: 500MG X 1 TABLET IN THE MORNING AND AT BEDTIME
  11. AMITRIPTYLINE HCL [Concomitant]
     Indication: FEELING OF RELAXATION
     Dosage: 50MG X 1 TABLET AT LUNCH AND 2 TABLETS AT BEDTIME
  12. POTASSIUM CHLORIDE [Concomitant]
     Indication: BLOOD POTASSIUM DECREASED
     Dosage: 10 MEQ S.R DAILY
  13. HUMIRA [Suspect]
     Indication: CROHN'S DISEASE
     Route: 058
     Dates: start: 20090201, end: 20110201
  14. TOPIRAMATE [Concomitant]
     Indication: MIGRAINE
     Dosage: 25MG X 3 TABLETS IN MORNING AND AT BEDTIME
  15. PROMETHAZINE [Concomitant]
     Indication: NAUSEA
     Dosage: 25MG EVERY 4-6 HOURS AS REQUIRED
  16. LOVAZA [Concomitant]
     Indication: BLOOD CHOLESTEROL INCREASED
  17. PROTONIX [Concomitant]
     Indication: GASTROOESOPHAGEAL REFLUX DISEASE
     Dosage: 40 MG 1 DAILY
  18. CYCLOBENZAPRINE [Concomitant]
     Indication: MUSCLE RELAXANT THERAPY
     Dosage: IN THE MORNING AND AT BEDTIME
  19. SPIRONOLACTONE [Concomitant]
     Indication: FLUID RETENTION
     Dosage: 25MG X 1 TABLET IN THE MORNING AND AT NOON
  20. POTASSIUM CHLORIDE [Concomitant]
     Indication: HAEMORRHAGE
  21. NABUMETONE [Concomitant]
     Indication: PAIN
  22. VITAMIN B-12 [Concomitant]
     Indication: VITAMIN SUPPLEMENTATION
     Route: 050
  23. SERTRALINE HYDROCHLORIDE [Concomitant]
     Indication: DEPRESSION

REACTIONS (3)
  - DEVICE MALFUNCTION [None]
  - SKIN CANCER [None]
  - INJECTION SITE PAIN [None]
